FAERS Safety Report 4416272-3 (Version None)
Quarter: 2004Q3

REPORT INFORMATION
  Report Type: 
  Country: None (occurrence: None)
  Receive Date: 20040805
  Receipt Date: 20040730
  Transmission Date: 20050211
  Serious: Yes (Other)
  Sender: FDA-Public Use
  Company Number: PHBS2004CL10092

PATIENT
  Age: 55 Year
  Sex: Female

DRUGS (2)
  1. TAREG [Suspect]
     Dosage: 80 MG/DAY
     Route: 048
     Dates: start: 20000101
  2. TAREG [Suspect]
     Dosage: 80 MG/DAY
     Route: 048
     Dates: start: 20020101

REACTIONS (5)
  - ANAPHYLACTOID REACTION [None]
  - ARRHYTHMIA [None]
  - HYPERSENSITIVITY [None]
  - PALLOR [None]
  - TONGUE DISORDER [None]
